FAERS Safety Report 11467883 (Version 3)
Quarter: 2015Q3

REPORT INFORMATION
  Report Type: Spontaneous
  Country: JP (occurrence: JP)
  Receive Date: 20150908
  Receipt Date: 20150923
  Transmission Date: 20151125
  Serious: Yes (Other)
  Sender: FDA-Public Use
  Company Number: JP-PFIZER INC-2015296466

PATIENT
  Age: 72 Year
  Sex: Female

DRUGS (12)
  1. MICARDIS [Suspect]
     Active Substance: TELMISARTAN
     Indication: HYPERTENSION
     Dosage: 40 MG, 1X/DAY
     Route: 065
  2. LASIX [Suspect]
     Active Substance: FUROSEMIDE
     Dosage: 40 MG, 1X/DAY
     Route: 048
  3. NORSPAN [Concomitant]
     Active Substance: BUPRENORPHINE
     Dosage: UNK
  4. ALFAROL [Concomitant]
     Active Substance: ALFACALCIDOL
     Dosage: UNK
     Route: 048
  5. FERROMIA [Concomitant]
     Active Substance: FERROUS CITRATE
     Dosage: UNK
     Route: 048
  6. LIPITOR [Suspect]
     Active Substance: ATORVASTATIN CALCIUM
     Indication: HYPERTENSION
  7. LIPITOR [Suspect]
     Active Substance: ATORVASTATIN CALCIUM
     Indication: DYSLIPIDAEMIA
     Dosage: 10 MG, EVERY OTHER DAY
     Route: 048
  8. MICARDIS [Suspect]
     Active Substance: TELMISARTAN
     Indication: DYSLIPIDAEMIA
  9. TAKEPRON [Concomitant]
     Active Substance: LANSOPRAZOLE
     Dosage: UNK
     Route: 048
  10. WARFARIN /00014803/ [Suspect]
     Active Substance: WARFARIN
     Dosage: UNK
     Route: 048
  11. FEMARA [Concomitant]
     Active Substance: LETROZOLE
     Dosage: UNK
     Route: 048
  12. FEBURIC [Suspect]
     Active Substance: FEBUXOSTAT
     Dosage: UNK
     Route: 048

REACTIONS (2)
  - Renal impairment [Not Recovered/Not Resolved]
  - Intentional product misuse [Unknown]
